FAERS Safety Report 23344296 (Version 1)
Quarter: 2023Q4

REPORT INFORMATION
  Report Type: Spontaneous
  Country: US (occurrence: US)
  Receive Date: 20231228
  Receipt Date: 20231228
  Transmission Date: 20240110
  Serious: Yes (Other)
  Sender: FDA-Public Use
  Company Number: US-ABBVIE-5561697

PATIENT
  Sex: Female

DRUGS (1)
  1. REFRESH P.M. [Suspect]
     Active Substance: MINERAL OIL\PETROLATUM
     Indication: Product used for unknown indication
     Route: 047

REACTIONS (2)
  - Dry age-related macular degeneration [Unknown]
  - Ocular hyperaemia [Unknown]
